FAERS Safety Report 9548306 (Version 1)
Quarter: 2013Q3

REPORT INFORMATION
  Report Type: Spontaneous
  Country: US (occurrence: None)
  Receive Date: 20130705
  Receipt Date: 20130705
  Transmission Date: 20140515
  Serious: Yes (Hospitalization)
  Sender: FDA-Public Use
  Company Number: RB-54050-2013

PATIENT
  Age: 24 Year
  Sex: Female

DRUGS (2)
  1. SUBOXONE 8 MG [Suspect]
     Indication: DRUG DEPENDENCE
     Dosage: (SUBOXONE FILM; VARIOUS TAPERED DOSES DOWN TO 1 MG ON 09-MAY-2013 SUBLINGUAL)
     Dates: start: 2010, end: 20130509
  2. NALTREXONE [Suspect]
     Indication: DRUG DEPENDENCE
     Dates: start: 20130512, end: 20130512

REACTIONS (5)
  - Wrong technique in drug usage process [None]
  - Drug detoxification [None]
  - Vomiting [None]
  - Diarrhoea [None]
  - Psychomotor hyperactivity [None]
